FAERS Safety Report 7916200-X (Version None)
Quarter: 2011Q4

REPORT INFORMATION
  Report Type: 
  Country: None (occurrence: None)
  Receive Date: 20111116
  Receipt Date: 20111110
  Transmission Date: 20120403
  Serious: No
  Sender: FDA-Public Use
  Company Number: US-BIOGENIDEC-2011BI009678

PATIENT
  Age: 54 Year
  Sex: Female

DRUGS (3)
  1. PROVIGIL [Concomitant]
     Indication: HYPERSOMNIA
  2. TYSABRI [Suspect]
     Indication: MULTIPLE SCLEROSIS
     Route: 042
     Dates: start: 20100105
  3. PROVIGIL [Concomitant]
     Indication: FATIGUE

REACTIONS (7)
  - ATAXIA [None]
  - TREMOR [None]
  - HYPERSOMNIA [None]
  - FATIGUE [None]
  - GAIT DISTURBANCE [None]
  - MYELITIS [None]
  - MULTIPLE SCLEROSIS RELAPSE [None]
